FAERS Safety Report 12723106 (Version 1)
Quarter: 2016Q3

REPORT INFORMATION
  Report Type: Spontaneous
  Country: FR (occurrence: FR)
  Receive Date: 20160908
  Receipt Date: 20160908
  Transmission Date: 20161109
  Serious: Yes (Hospitalization)
  Sender: FDA-Public Use
  Company Number: FR-ORION CORPORATION ORION PHARMA-TREX2016-1635

PATIENT
  Age: 79 Year
  Sex: Female

DRUGS (10)
  1. IMETH [Interacting]
     Active Substance: METHOTREXATE SODIUM
     Route: 048
     Dates: start: 20160721, end: 20160815
  2. PERINDOPRIL [Concomitant]
     Active Substance: PERINDOPRIL
     Route: 065
     Dates: end: 20160816
  3. GLIMEPRIDE [Concomitant]
     Active Substance: GLIMEPIRIDE
     Route: 065
     Dates: end: 20160816
  4. GALVUS [Concomitant]
     Active Substance: VILDAGLIPTIN
     Route: 065
     Dates: end: 20160816
  5. LASILIX [Interacting]
     Active Substance: FUROSEMIDE
     Route: 048
     Dates: end: 20160816
  6. PREVISCAN [Concomitant]
     Active Substance: FLUINDIONE
     Route: 065
     Dates: end: 20160816
  7. BISOPROLOL [Concomitant]
     Active Substance: BISOPROLOL
     Route: 065
     Dates: end: 20160816
  8. CORTANCYL [Concomitant]
     Active Substance: PREDNISONE
     Route: 065
     Dates: end: 20160816
  9. METFORMIN [Concomitant]
     Active Substance: METFORMIN HYDROCHLORIDE
     Route: 065
     Dates: end: 20160816
  10. IMETH [Suspect]
     Active Substance: METHOTREXATE SODIUM
     Indication: RHEUMATOID ARTHRITIS
     Route: 048
     Dates: start: 201604

REACTIONS (13)
  - Sepsis [Unknown]
  - Decreased appetite [Unknown]
  - Drug interaction [Unknown]
  - Pyrexia [Unknown]
  - Oral candidiasis [Unknown]
  - Hypotension [Unknown]
  - Bone marrow failure [Unknown]
  - Asthenia [Unknown]
  - Aphthous ulcer [Unknown]
  - Dehydration [Unknown]
  - Diarrhoea [Unknown]
  - Pancytopenia [Recovering/Resolving]
  - Hypoalbuminaemia [Unknown]

NARRATIVE: CASE EVENT DATE: 20160812
